FAERS Safety Report 8881648 (Version 1)
Quarter: 2012Q4

REPORT INFORMATION
  Report Type: 
  Country: CA (occurrence: CA)
  Receive Date: 20121101
  Receipt Date: 20121101
  Transmission Date: 20130627
  Serious: Yes (Death, Other)
  Sender: FDA-Public Use
  Company Number: CA-PFIZER INC-2012265489

PATIENT
  Age: 62 Year
  Sex: Female

DRUGS (3)
  1. CELEBREX [Suspect]
     Indication: ARTHRITIS
     Dosage: 100 mg, 2x/day
     Dates: start: 20010430, end: 20011112
  2. CELEBREX [Suspect]
     Indication: JOINT PAIN
     Dosage: 200 mg, 2x/day
     Dates: start: 20011113
  3. CELEBREX [Suspect]
     Dosage: UNK
     Dates: end: 20040325

REACTIONS (3)
  - Myocardial infarction [Fatal]
  - Multi-organ failure [Fatal]
  - Mitral valve incompetence [Fatal]
